FAERS Safety Report 10268516 (Version 1)
Quarter: 2014Q2

REPORT INFORMATION
  Report Type: Spontaneous
  Country: US (occurrence: US)
  Receive Date: 20140630
  Receipt Date: 20140630
  Transmission Date: 20141212
  Serious: No
  Sender: FDA-Public Use
  Company Number: US-AMGEN INC.-USASP2014046890

PATIENT
  Age: 61 Year
  Sex: Female

DRUGS (5)
  1. ENBREL [Suspect]
     Indication: RHEUMATOID ARTHRITIS
     Dosage: 50 MG, UNK
     Route: 065
     Dates: start: 20130701
  2. METHOTREXATE [Concomitant]
     Dosage: UNK
  3. HYDROCODONE [Concomitant]
     Dosage: UNK, AS NECESSARY
  4. MORPHINE [Concomitant]
     Dosage: UNK, THREE TIMES A DAY
  5. CYMBALTA [Concomitant]
     Dosage: UNK, DAILY

REACTIONS (9)
  - Headache [Recovered/Resolved]
  - Nasal congestion [Recovered/Resolved]
  - Lethargy [Recovered/Resolved]
  - Swelling face [Recovered/Resolved]
  - Arthralgia [Not Recovered/Not Resolved]
  - Foot deformity [Not Recovered/Not Resolved]
  - Pain in extremity [Not Recovered/Not Resolved]
  - Gait disturbance [Not Recovered/Not Resolved]
  - Dysstasia [Recovered/Resolved]
